FAERS Safety Report 9122780 (Version 1)
Quarter: 2013Q1

REPORT INFORMATION
  Report Type: Spontaneous
  Country: US (occurrence: None)
  Receive Date: 20130130
  Receipt Date: 20130130
  Transmission Date: 20140127
  Serious: Yes (Death)
  Sender: FDA-Public Use
  Company Number: B0859570A

PATIENT
  Age: 39 Year
  Sex: Male

DRUGS (7)
  1. AMOXICILLIN TRIHYDRATE [Suspect]
     Route: 048
  2. RANITIDINE HYDROCHLORIDE [Suspect]
     Route: 048
  3. TRAZODONE [Suspect]
     Route: 048
  4. HYDROCODONE + PARACETAMOL [Suspect]
     Route: 048
  5. METHADONE HYDROCHLORIDE [Suspect]
     Route: 048
  6. AMOXICILLIN TRIHYDRATE [Suspect]
     Route: 048
  7. ALPRAZOLAM [Suspect]
     Route: 048

REACTIONS (1)
  - Death [None]
